FAERS Safety Report 23981308 (Version 2)
Quarter: 2024Q2

REPORT INFORMATION
  Report Type: Spontaneous
  Country: GB (occurrence: GB)
  Receive Date: 20240617
  Receipt Date: 20240626
  Transmission Date: 20240715
  Serious: Yes (Hospitalization, Other)
  Sender: FDA-Public Use
  Company Number: GB-MYLANLABS-2024M1054085

PATIENT
  Sex: Male

DRUGS (1)
  1. CLOZARIL [Suspect]
     Active Substance: CLOZAPINE
     Indication: Schizophrenia
     Dosage: UNK
     Route: 048
     Dates: start: 20021113

REACTIONS (5)
  - Hospitalisation [Unknown]
  - Tuberculosis [Unknown]
  - Intestinal ischaemia [Unknown]
  - Coagulopathy [Unknown]
  - Platelet count increased [Unknown]
